FAERS Safety Report 17542969 (Version 1)
Quarter: 2020Q1

REPORT INFORMATION
  Report Type: Spontaneous
  Country: US (occurrence: US)
  Receive Date: 20200316
  Receipt Date: 20200316
  Transmission Date: 20200409
  Serious: No
  Sender: FDA-Public Use
  Company Number: US-AUROBINDO-AUR-APL-2019-021274

PATIENT
  Sex: Female
  Weight: 62.6 kg

DRUGS (2)
  1. AMOXICILLIN+CLAVULANIC ACID TABLET [Suspect]
     Active Substance: AMOXICILLIN\CLAVULANIC ACID
     Indication: COUGH
     Dosage: UNK, 3 TABLETS WERE PRESCRIBED BY THE DOCTOR
     Route: 065
  2. LEVOFLOXACIN TABLETS 750MG [Suspect]
     Active Substance: LEVOFLOXACIN
     Indication: COUGH
     Dosage: UNK
     Route: 065

REACTIONS (1)
  - Drug ineffective [Unknown]
